FAERS Safety Report 5670862-9 (Version None)
Quarter: 2008Q1

REPORT INFORMATION
  Report Type: 
  Country: None (occurrence: None)
  Receive Date: 20080318
  Receipt Date: 20080307
  Transmission Date: 20080703
  Serious: Yes (Hospitalization, Disabling)
  Sender: FDA-Public Use
  Company Number: US-MERCK-0712USA08157

PATIENT
  Age: 70 Year
  Sex: Female
  Weight: 57 kg

DRUGS (2)
  1. FOSAMAX [Suspect]
     Indication: OSTEOPOROSIS
     Route: 048
  2. LISINOPRIL [Concomitant]
     Indication: HYPERTENSION
     Route: 065
     Dates: start: 19970101

REACTIONS (8)
  - ANKLE FRACTURE [None]
  - DEHYDRATION [None]
  - DEPRESSION [None]
  - FALL [None]
  - PAIN [None]
  - RESORPTION BONE INCREASED [None]
  - SINUSITIS [None]
  - TOOTH LOSS [None]
